FAERS Safety Report 22640348 (Version 1)
Quarter: 2023Q2

REPORT INFORMATION
  Report Type: Spontaneous
  Country: US (occurrence: US)
  Receive Date: 20230626
  Receipt Date: 20230626
  Transmission Date: 20230721
  Serious: No
  Sender: FDA-Public Use
  Company Number: US-002147023-NVSC2023US141319

PATIENT
  Sex: Male

DRUGS (2)
  1. CLARITHROMYCIN [Suspect]
     Active Substance: CLARITHROMYCIN
     Indication: Mycobacterial infection
     Dosage: 50 MG, QD (FOOD TYPICALLY START WITH 50MG DAILY X1 WEEK)
     Route: 048
  2. CLARITHROMYCIN [Suspect]
     Active Substance: CLARITHROMYCIN
     Indication: Abscess
     Dosage: 100 MG, QD
     Route: 065

REACTIONS (2)
  - Bursitis [Unknown]
  - Drug resistance [Unknown]
